FAERS Safety Report 9570990 (Version 2)
Quarter: 2013Q4

REPORT INFORMATION
  Report Type: Spontaneous
  Country: US (occurrence: US)
  Receive Date: 20131001
  Receipt Date: 20131015
  Transmission Date: 20140711
  Serious: Yes (Hospitalization)
  Sender: FDA-Public Use
  Company Number: US-SA-2013SA095198

PATIENT
  Age: 62 Year
  Sex: Female
  Weight: 90.72 kg

DRUGS (7)
  1. LANTUS SOLOSTAR [Suspect]
     Indication: TYPE 2 DIABETES MELLITUS
     Dosage: DOSE:26 UNIT(S)
     Route: 058
     Dates: start: 20090415
  2. SOLOSTAR [Concomitant]
     Indication: TYPE 2 DIABETES MELLITUS
     Dates: start: 200904
  3. METOPROLOL [Concomitant]
     Indication: HYPERTENSION
  4. LOSARTAN [Concomitant]
     Indication: HYPERTENSION
  5. ATORVASTATIN [Concomitant]
     Indication: LIPIDS
  6. CLOPIDOGREL [Concomitant]
     Indication: PERIPHERAL ARTERIAL OCCLUSIVE DISEASE
  7. ASPIRIN [Concomitant]
     Indication: CARDIAC DISORDER
     Route: 065

REACTIONS (2)
  - Adverse event [Recovered/Resolved]
  - Renal failure [Recovered/Resolved]
